FAERS Safety Report 17043842 (Version 1)
Quarter: 2019Q4

REPORT INFORMATION
  Report Type: Spontaneous
  Country: CN (occurrence: CN)
  Receive Date: 20191118
  Receipt Date: 20191118
  Transmission Date: 20200122
  Serious: Yes (Other)
  Sender: FDA-Public Use
  Company Number: CN-PFIZER INC-2019496337

PATIENT
  Age: 66 Year
  Sex: Female
  Weight: 65 kg

DRUGS (2)
  1. ZITHROMAX [Suspect]
     Active Substance: AZITHROMYCIN DIHYDRATE
     Indication: PNEUMONIA
     Dosage: 500 MG, 1X/DAY
     Route: 041
     Dates: start: 20190924
  2. ZITHROMAX [Suspect]
     Active Substance: AZITHROMYCIN DIHYDRATE
     Dosage: 500 MG, 1X/DAY
     Route: 041
     Dates: end: 20190929

REACTIONS (3)
  - Palpitations [Recovering/Resolving]
  - Electrocardiogram QT prolonged [Unknown]
  - Chest discomfort [Recovering/Resolving]

NARRATIVE: CASE EVENT DATE: 20190929
